FAERS Safety Report 12322176 (Version 3)
Quarter: 2016Q3

REPORT INFORMATION
  Report Type: Spontaneous
  Country: JP (occurrence: JP)
  Receive Date: 20160502
  Receipt Date: 20160713
  Transmission Date: 20161109
  Serious: Yes (Hospitalization, Other)
  Sender: FDA-Public Use
  Company Number: JP-TEVA-2016-JP-000856J

PATIENT
  Sex: Male

DRUGS (6)
  1. LOXONIN [Concomitant]
     Active Substance: LOXOPROFEN SODIUM
     Indication: ANALGESIC THERAPY
     Route: 048
     Dates: start: 20150626, end: 20150627
  2. GENINAX [Concomitant]
     Active Substance: GARENOXACIN MESYLATE
     Indication: ANTIINFLAMMATORY THERAPY
     Dosage: 400 MILLIGRAM DAILY;
     Route: 048
     Dates: start: 20150626, end: 20150627
  3. TRANSAMIN [Concomitant]
     Active Substance: TRANEXAMIC ACID
     Indication: ANTIINFLAMMATORY THERAPY
     Route: 048
     Dates: start: 20150626, end: 20150627
  4. SAXIZON [Suspect]
     Active Substance: HYDROCORTISONE SODIUM SUCCINATE
     Indication: ANTIINFLAMMATORY THERAPY
     Route: 042
     Dates: start: 20150627, end: 20150627
  5. SELBEX [Concomitant]
     Active Substance: TEPRENONE
     Route: 065
     Dates: start: 20150626
  6. ROCEPHIN [Suspect]
     Active Substance: CEFTRIAXONE SODIUM
     Indication: ANTIINFLAMMATORY THERAPY
     Dosage: 1 GRAM DAILY;
     Route: 042
     Dates: start: 20150627, end: 20150627

REACTIONS (2)
  - Urticaria [Recovering/Resolving]
  - Anaphylactic reaction [Recovering/Resolving]
